FAERS Safety Report 20167320 (Version 1)
Quarter: 2021Q4

REPORT INFORMATION
  Report Type: Spontaneous
  Country: US (occurrence: None)
  Receive Date: 20211208
  Receipt Date: 20211208
  Transmission Date: 20220303
  Serious: Yes (Other)
  Sender: FDA-Public Use
  Company Number: None

PATIENT
  Age: 68 Year
  Sex: Female
  Weight: 49.5 kg

DRUGS (3)
  1. ALTRENO [Suspect]
     Active Substance: TRETINOIN
     Indication: Therapeutic skin care topical
     Dosage: FREQUENCY : TWICE A DAY;?
     Route: 061
  2. VITAMIN D3 [Concomitant]
     Active Substance: CHOLECALCIFEROL
  3. ONE PER DAY [Concomitant]

REACTIONS (3)
  - Application site erythema [None]
  - Application site rash [None]
  - Eye pruritus [None]

NARRATIVE: CASE EVENT DATE: 20210915
